FAERS Safety Report 10480613 (Version 11)
Quarter: 2016Q2

REPORT INFORMATION
  Report Type: Report from Study
  Country: GB (occurrence: GB)
  Receive Date: 20140929
  Receipt Date: 20160621
  Transmission Date: 20160815
  Serious: Yes (Hospitalization, Other)
  Sender: FDA-Public Use
  Company Number: GB-ROCHE-1467248

PATIENT
  Age: 37 Year
  Sex: Female
  Weight: 48 kg

DRUGS (8)
  1. DECAPEPTYL (ACETATE) [Concomitant]
     Active Substance: TRIPTORELIN ACETATE
     Route: 065
     Dates: start: 20140214
  2. SELENIUM [Concomitant]
     Active Substance: SELENIUM
     Route: 065
     Dates: start: 20131003
  3. SENOKOT [Concomitant]
     Active Substance: SENNOSIDES
     Route: 065
     Dates: start: 20130422
  4. MAGNESIUM HYDROXIDE. [Concomitant]
     Active Substance: MAGNESIUM HYDROXIDE
     Dosage: 8 %
     Route: 065
     Dates: start: 20130422
  5. PARACETAMOL [Concomitant]
     Active Substance: ACETAMINOPHEN
     Route: 065
     Dates: start: 20130422
  6. ZOPICLONE [Concomitant]
     Active Substance: ZOPICLONE
     Route: 065
     Dates: start: 20130422
  7. DIAZEPAM. [Concomitant]
     Active Substance: DIAZEPAM
     Route: 065
     Dates: start: 20130423
  8. BEVACIZUMAB [Suspect]
     Active Substance: BEVACIZUMAB
     Indication: OVARIAN CANCER
     Dosage: LAST DOSE PRIOR TO EVENT OF VAGINAL BLEEDING: DATE NOT KNOWN; DOSE WAS AT 350 MG?LAST DOSE PRIOR TO
     Route: 042
     Dates: start: 20130827, end: 20140711

REACTIONS (5)
  - Enterovesical fistula [Recovered/Resolved]
  - Urinary tract infection [Recovered/Resolved]
  - Vaginal haemorrhage [Recovered/Resolved]
  - Anaemia [Recovered/Resolved]
  - Proteinuria [Recovered/Resolved]

NARRATIVE: CASE EVENT DATE: 20131112
